FAERS Safety Report 9788573 (Version 2)
Quarter: 2014Q1

REPORT INFORMATION
  Report Type: Spontaneous
  Country: US (occurrence: US)
  Receive Date: 20131230
  Receipt Date: 20140220
  Transmission Date: 20141002
  Serious: Yes (Other)
  Sender: FDA-Public Use
  Company Number: US-ELI_LILLY_AND_COMPANY-US201312007500

PATIENT
  Sex: Male
  Weight: 117.1 kg

DRUGS (24)
  1. HUMALOG 25% LISPRO, 75% NPL [Suspect]
     Indication: DIABETES MELLITUS
     Dosage: 47 U, EACH MORNING
     Route: 058
  2. HUMALOG 25% LISPRO, 75% NPL [Suspect]
     Dosage: 45 U, EACH EVENING
     Route: 058
     Dates: start: 1998
  3. HUMALOG 25% LISPRO, 75% NPL [Suspect]
     Dosage: 47 U, EACH MORNING
     Route: 058
  4. HUMALOG 25% LISPRO, 75% NPL [Suspect]
     Dosage: 45 U, EACH EVENING
     Route: 058
  5. HUMALOG LISPRO [Suspect]
     Indication: DIABETES MELLITUS
     Route: 065
  6. RESTORIL                           /00393701/ [Concomitant]
     Dosage: 30 MG, EACH EVENING
  7. METFORMIN ER [Concomitant]
     Dosage: 1000 MG, BID
  8. ZEBETA [Concomitant]
     Dosage: 10 MG, EACH MORNING
  9. AVODART [Concomitant]
     Dosage: 0.5 MG, EACH MORNING
  10. CYMBALTA [Concomitant]
     Dosage: 60 MG, EACH MORNING
  11. DIOVAN HCT [Concomitant]
     Dosage: 1 DF, EACH MORNING
  12. PROTONIX [Concomitant]
     Dosage: 40 MG, EACH MORNING
  13. PLAVIX [Concomitant]
     Dosage: 75 MG, EACH MORNING
  14. ALDACTONE                          /00006201/ [Concomitant]
     Dosage: 12.5 MG, EACH MORNING
  15. ATORVASTATIN [Concomitant]
     Dosage: 80 MG, EACH EVENING
  16. MONTELUKAST [Concomitant]
     Dosage: 10 MG, EACH EVENING
  17. WAL ITIN [Concomitant]
     Dosage: 10 MG, EACH MORNING
  18. ASPIRIN [Concomitant]
     Dosage: 81 MG, EACH EVENING
  19. VITAMIN D3 [Concomitant]
     Dosage: 1000 IU, EACH MORNING
  20. MULTIVITAMIN                       /00831701/ [Concomitant]
     Dosage: UNK, EACH MORNING
  21. PRESERVISION EYE VITAMIN AND MINERAL SUPPL. [Concomitant]
     Dosage: UNK, BID
  22. IMODIUM [Concomitant]
     Dosage: UNK, PRN
  23. LACTAID [Concomitant]
     Dosage: UNK, PRN
  24. ADVAIR [Concomitant]
     Dosage: 1 DF, BID

REACTIONS (5)
  - Transient ischaemic attack [Recovered/Resolved with Sequelae]
  - Balance disorder [Not Recovered/Not Resolved]
  - Fall [Not Recovered/Not Resolved]
  - Back disorder [Not Recovered/Not Resolved]
  - Mobility decreased [Not Recovered/Not Resolved]
